FAERS Safety Report 4283746-8 (Version None)
Quarter: 2004Q1

REPORT INFORMATION
  Report Type: 
  Country: None (occurrence: None)
  Receive Date: 20040202
  Receipt Date: 20031016
  Transmission Date: 20041129
  Serious: Yes (Hospitalization, Other)
  Sender: FDA-Public Use
  Company Number: WAES 0310USA01951

PATIENT
  Age: 62 Year
  Sex: Male
  Weight: 80 kg

DRUGS (6)
  1. RESPAIRE [Concomitant]
  2. MINOCYCLINE [Concomitant]
  3. PIROXICAM [Concomitant]
     Dates: end: 20000718
  4. PREDNISONE [Concomitant]
  5. ZANTAC [Concomitant]
  6. VIOXX [Suspect]
     Indication: RHEUMATOID ARTHRITIS
     Route: 048
     Dates: start: 20000718, end: 20010914

REACTIONS (10)
  - BLOOD PRESSURE INCREASED [None]
  - CORONARY ARTERY DISEASE [None]
  - ELECTROCARDIOGRAM T WAVE INVERSION [None]
  - HYPOXIA [None]
  - ISCHAEMIA [None]
  - MYOCARDIAL INFARCTION [None]
  - PULMONARY OEDEMA [None]
  - ROTATOR CUFF SYNDROME [None]
  - SKIN DISORDER [None]
  - SYNCOPE [None]
